FAERS Safety Report 8144874-X (Version None)
Quarter: 2012Q1

REPORT INFORMATION
  Report Type: 
  Country: None (occurrence: None)
  Receive Date: 20120217
  Receipt Date: 20120209
  Transmission Date: 20120608
  Serious: Yes (Hospitalization)
  Sender: FDA-Public Use
  Company Number: US-GLAXOSMITHKLINE-B0722835A

PATIENT
  Age: 75 Year
  Sex: Female
  Weight: 95.5 kg

DRUGS (2)
  1. INSULIN [Concomitant]
  2. AVANDIA [Suspect]
     Indication: DIABETES MELLITUS
     Dosage: 2MG PER DAY
     Route: 048
     Dates: start: 20010101, end: 20040101

REACTIONS (3)
  - OBSTRUCTION [None]
  - MYOCARDIAL INFARCTION [None]
  - STENT PLACEMENT [None]
